FAERS Safety Report 10145885 (Version 1)
Quarter: 2014Q2

REPORT INFORMATION
  Report Type: Spontaneous
  Country: US (occurrence: US)
  Receive Date: 20140501
  Receipt Date: 20140501
  Transmission Date: 20141212
  Serious: No
  Sender: FDA-Public Use
  Company Number: US-ABBVIE-13P-163-1092963-00

PATIENT
  Age: 50 Year
  Sex: Female

DRUGS (2)
  1. CREON [Suspect]
     Indication: PANCREATITIS
     Dates: start: 20130402
  2. UNKNOWN MEDICATION [Suspect]
     Indication: PRODUCT USED FOR UNKNOWN INDICATION
     Dates: start: 201305, end: 201305

REACTIONS (1)
  - Dysarthria [Recovered/Resolved]
